FAERS Safety Report 5606431-6 (Version None)
Quarter: 2008Q1

REPORT INFORMATION
  Report Type: 
  Country: None (occurrence: None)
  Receive Date: 20080129
  Receipt Date: 20071024
  Transmission Date: 20080703
  Serious: No
  Sender: FDA-Public Use
  Company Number: A0690124A

PATIENT
  Sex: Male

DRUGS (4)
  1. WELLBUTRIN [Suspect]
     Route: 048
  2. GLUCOPHAGE [Concomitant]
  3. MULTI-VITAMIN [Concomitant]
  4. FISH OIL [Concomitant]

REACTIONS (1)
  - PAROSMIA [None]
